FAERS Safety Report 24742287 (Version 1)
Quarter: 2024Q4

REPORT INFORMATION
  Report Type: Report from Study
  Country: FR (occurrence: FR)
  Receive Date: 20241217
  Receipt Date: 20241217
  Transmission Date: 20250114
  Serious: Yes (Other)
  Sender: AUROBINDO
  Company Number: FR-AUROBINDO-AUR-APL-2024-060280

PATIENT
  Sex: Female

DRUGS (6)
  1. ASPIRIN [Suspect]
     Active Substance: ASPIRIN
     Indication: Placental disorder
     Dosage: UNK
     Route: 065
  2. PREDNISONE [Suspect]
     Active Substance: PREDNISONE
     Indication: Placental disorder
     Dosage: UNK
     Route: 065
  3. UNSPECIFIED INGREDIENT [Suspect]
     Active Substance: UNSPECIFIED INGREDIENT
     Indication: Placental disorder
     Dosage: UNK
     Route: 065
  4. HYDROXYCHLOROQUINE [Suspect]
     Active Substance: HYDROXYCHLOROQUINE
     Indication: Placental disorder
     Dosage: UNK
     Route: 065
  5. COLCHICINE [Suspect]
     Active Substance: COLCHICINE
     Indication: Placental disorder
     Dosage: UNK
     Route: 065
  6. ANAKINRA [Suspect]
     Active Substance: ANAKINRA
     Indication: Placental disorder
     Dosage: UNK
     Route: 065

REACTIONS (2)
  - Drug ineffective [Unknown]
  - Exposure during pregnancy [Unknown]
